FAERS Safety Report 25608731 (Version 2)
Quarter: 2025Q3

REPORT INFORMATION
  Report Type: Spontaneous
  Country: EU (occurrence: EU)
  Receive Date: 20250726
  Receipt Date: 20250806
  Transmission Date: 20251021
  Serious: Yes (Hospitalization, Other)
  Sender: AUROBINDO
  Company Number: EU-BRISTOL-MYERS SQUIBB COMPANY-2023-086919

PATIENT
  Age: 57 Year
  Sex: Female

DRUGS (6)
  1. CARBOPLATIN [Suspect]
     Active Substance: CARBOPLATIN
     Indication: Non-small cell lung cancer
     Dosage: 400 MILLIGRAM, EVERY WEEK
     Route: 042
     Dates: start: 20220914, end: 20231025
  2. CARBOPLATIN [Suspect]
     Active Substance: CARBOPLATIN
     Route: 042
  3. OPDIVO [Suspect]
     Active Substance: NIVOLUMAB
     Indication: Non-small cell lung cancer
     Route: 042
     Dates: start: 20220914, end: 20230124
  4. OPDIVO [Suspect]
     Active Substance: NIVOLUMAB
     Route: 042
  5. YERVOY [Suspect]
     Active Substance: IPILIMUMAB
     Indication: Non-small cell lung cancer
     Route: 042
     Dates: start: 20220914, end: 20230124
  6. YERVOY [Suspect]
     Active Substance: IPILIMUMAB
     Route: 042

REACTIONS (5)
  - Deep vein thrombosis [Unknown]
  - General physical health deterioration [Unknown]
  - Varicophlebitis [Unknown]
  - Immune-mediated hypophysitis [Recovered/Resolved]
  - Off label use [Unknown]

NARRATIVE: CASE EVENT DATE: 20221206
